FAERS Safety Report 12741979 (Version 1)
Quarter: 2016Q3

REPORT INFORMATION
  Report Type: Spontaneous
  Country: US (occurrence: US)
  Receive Date: 20160913
  Receipt Date: 20160913
  Transmission Date: 20161109
  Serious: Yes (Other)
  Sender: FDA-Public Use
  Company Number: None

PATIENT
  Age: 45 Year
  Sex: Female
  Weight: 65.25 kg

DRUGS (1)
  1. DYSPORT [Suspect]
     Active Substance: ABOBOTULINUMTOXINA
     Dosage: ROUTE:OTHER

REACTIONS (5)
  - Mental disorder [None]
  - Eye swelling [None]
  - Ocular hyperaemia [None]
  - Visual acuity reduced [None]
  - Impaired work ability [None]

NARRATIVE: CASE EVENT DATE: 20160902
